FAERS Safety Report 8112272-0 (Version None)
Quarter: 2012Q1

REPORT INFORMATION
  Report Type: 
  Country: None (occurrence: None)
  Receive Date: 20120203
  Receipt Date: 20120203
  Transmission Date: 20120608
  Serious: Yes (Hospitalization)
  Sender: FDA-Public Use
  Company Number: None

PATIENT
  Age: 23 Year
  Sex: Female
  Weight: 88.45 kg

DRUGS (1)
  1. LOW-OGESTREL-28 [Suspect]
     Indication: CONTRACEPTION
     Dosage: 28 TABLETS
     Route: 002
     Dates: start: 20111001, end: 20111231

REACTIONS (5)
  - PREGNANCY ON ORAL CONTRACEPTIVE [None]
  - ABDOMINAL PAIN UPPER [None]
  - MATERNAL EXPOSURE DURING PREGNANCY [None]
  - MALAISE [None]
  - VOMITING [None]
